FAERS Safety Report 15657382 (Version 1)
Quarter: 2018Q4

REPORT INFORMATION
  Report Type: Spontaneous
  Country: ES (occurrence: ES)
  Receive Date: 20181126
  Receipt Date: 20181126
  Transmission Date: 20190205
  Serious: Yes (Hospitalization, Other)
  Sender: FDA-Public Use
  Company Number: ES-SAKK-2018SA168428AA

PATIENT
  Age: 91 Year
  Sex: Female

DRUGS (7)
  1. GENTAMICIN SULFATE. [Suspect]
     Active Substance: GENTAMICIN SULFATE
     Indication: INFECTED SKIN ULCER
     Dosage: UNK
     Route: 042
     Dates: start: 20170921, end: 20171002
  2. BISOPROLOL [Concomitant]
     Active Substance: BISOPROLOL
     Dosage: UNK UNK, HS
     Route: 048
     Dates: start: 20170912
  3. FUROSEMIDE. [Suspect]
     Active Substance: FUROSEMIDE
     Indication: OEDEMA
     Dosage: 20 MG, Q8H
     Route: 042
     Dates: start: 20170927, end: 20171003
  4. HYDROCORTISONE. [Suspect]
     Active Substance: HYDROCORTISONE
     Dosage: 100 MG, QD
     Route: 048
     Dates: start: 20170921, end: 20171002
  5. PARACETAMOL [Concomitant]
     Active Substance: ACETAMINOPHEN
     Dosage: UNK
     Route: 042
     Dates: start: 20170912
  6. PANTOPRAZOL [PANTOPRAZOLE] [Concomitant]
     Dosage: 40 MG, QD
     Route: 042
     Dates: start: 20170912
  7. ENOXAPARIN [Concomitant]
     Active Substance: ENOXAPARIN
     Dosage: 40 MG, Q12H
     Route: 058
     Dates: start: 20170912

REACTIONS (2)
  - Atrial fibrillation [Recovered/Resolved]
  - Hypokalaemia [Recovered/Resolved]

NARRATIVE: CASE EVENT DATE: 20171002
